FAERS Safety Report 4469546-4 (Version None)
Quarter: 2004Q3

REPORT INFORMATION
  Report Type: 
  Country: None (occurrence: None)
  Receive Date: 20040920
  Receipt Date: 20040616
  Transmission Date: 20050211
  Serious: Yes (Other)
  Sender: FDA-Public Use
  Company Number: PHEH2004US03652

PATIENT
  Age: 67 Year
  Sex: Female

DRUGS (23)
  1. ZOMETA [Suspect]
     Indication: MULTIPLE MYELOMA
     Dosage: 4 MG, QMO, INTRAVENOUS
     Route: 042
     Dates: start: 20020322, end: 20031222
  2. OXYCONTIN [Concomitant]
  3. PANTOPRAZOLE [Concomitant]
  4. CONJUGATED ESTROGENS [Concomitant]
  5. WELLBUTRIN [Concomitant]
  6. AMBIEN [Concomitant]
  7. CELEBREX [Concomitant]
  8. LACTULOSE [Concomitant]
  9. METOCLOPRAMIDE [Concomitant]
  10. DOCUSATE (DOCUSATE) [Concomitant]
  11. VALIUM [Concomitant]
  12. MIRALAX [Concomitant]
  13. OXYCODONE HCL [Concomitant]
  14. LEXAPRO [Concomitant]
  15. ANZEMET (DOLASETRON MESILATE) [Concomitant]
  16. MARINOL [Concomitant]
  17. POTASSIUM (POTASSIUM) [Concomitant]
  18. HYDROCORTISONE [Concomitant]
  19. AMOXICILLIN [Concomitant]
  20. VICODIN [Concomitant]
  21. SLO-MAG (MAGNESIUM CHLORIDE ANHYDROUS) [Concomitant]
  22. TORECAN [Concomitant]
  23. LEVAQUIN [Concomitant]

REACTIONS (6)
  - BONE DEBRIDEMENT [None]
  - BONE DISORDER [None]
  - IMPAIRED HEALING [None]
  - OSTEOMYELITIS ACUTE [None]
  - OSTEONECROSIS [None]
  - TOOTH EXTRACTION [None]
